FAERS Safety Report 14806504 (Version 3)
Quarter: 2018Q3

REPORT INFORMATION
  Report Type: Spontaneous
  Country: JP (occurrence: JP)
  Receive Date: 20180425
  Receipt Date: 20180726
  Transmission Date: 20181010
  Serious: Yes (Life-Threatening, Hospitalization)
  Sender: FDA-Public Use
  Company Number: JP-BAYER-2018-023531

PATIENT
  Age: 66 Year
  Sex: Male
  Weight: 72.6 kg

DRUGS (4)
  1. GADOVIST [Suspect]
     Active Substance: GADOBUTROL
     Indication: BENIGN PROSTATIC HYPERPLASIA
  2. GADOVIST [Suspect]
     Active Substance: GADOBUTROL
     Indication: NUCLEAR MAGNETIC RESONANCE IMAGING
     Dosage: 7.5 ML, ONCE
     Route: 042
     Dates: start: 20180201, end: 20180201
  3. DUTASTERIDE. [Concomitant]
     Active Substance: DUTASTERIDE
     Indication: BENIGN PROSTATIC HYPERPLASIA
     Dosage: DAILY DOSE 1 DF
     Route: 048
     Dates: start: 20161003
  4. TADALAFIL [Concomitant]
     Active Substance: TADALAFIL
     Indication: BENIGN PROSTATIC HYPERPLASIA
     Dosage: DAILY DOSE 1 T
     Route: 048
     Dates: start: 20170203

REACTIONS (16)
  - Blood pressure decreased [None]
  - Oxygen saturation decreased [Recovering/Resolving]
  - Dizziness [None]
  - Gait disturbance [None]
  - Anuria [None]
  - Non-cardiogenic pulmonary oedema [None]
  - Tachycardia [Recovering/Resolving]
  - Tachypnoea [Recovering/Resolving]
  - Contrast media allergy [Recovering/Resolving]
  - Acute respiratory failure [None]
  - Feeling abnormal [None]
  - Circulatory collapse [None]
  - Disuse syndrome [None]
  - Dyspnoea [Recovering/Resolving]
  - Cough [None]
  - Acute respiratory distress syndrome [Recovering/Resolving]

NARRATIVE: CASE EVENT DATE: 20180201
